FAERS Safety Report 8314671-0 (Version None)
Quarter: 2012Q2

REPORT INFORMATION
  Report Type: 
  Country: None (occurrence: None)
  Receive Date: 20120426
  Receipt Date: 20120418
  Transmission Date: 20120825
  Serious: Yes (Life-Threatening, Congenital Anomaly, Other)
  Sender: FDA-Public Use
  Company Number: DE-ELI_LILLY_AND_COMPANY-DE201204006255

PATIENT
  Weight: 3.04 kg

DRUGS (9)
  1. FLUOXETINE HYDROCHLORIDE [Suspect]
     Indication: DEPRESSION
     Dosage: 20 MG, QD
     Route: 064
     Dates: start: 20100130
  2. FOLSAURE [Concomitant]
     Indication: PROPHYLAXIS OF NEURAL TUBE DEFECT
     Dosage: 0.4 MG, QD
     Route: 064
  3. LEVOTHYROXINE SODIUM [Concomitant]
     Indication: HYPOTHYROIDISM
     Dosage: 50 UG, QD
     Route: 064
  4. ZOLPIDEM [Concomitant]
     Indication: SLEEP DISORDER
     Dosage: UNK, TID
     Route: 064
  5. VALIUM [Concomitant]
     Indication: RESTLESSNESS
     Dosage: 0.5 MG, TID
     Route: 064
  6. SEDACUR [Concomitant]
     Indication: RESTLESSNESS
     Route: 064
  7. RENNIE                             /06879101/ [Concomitant]
     Indication: GASTROOESOPHAGEAL REFLUX DISEASE
     Route: 064
  8. MOVICOL                            /01749801/ [Concomitant]
     Indication: CONSTIPATION
     Route: 064
  9. FLUOXETINE HYDROCHLORIDE [Suspect]
     Dosage: 10 MG, QD
     Route: 064
     Dates: end: 20100817

REACTIONS (5)
  - TRANSPOSITION OF THE GREAT VESSELS [None]
  - INTRAVENTRICULAR HAEMORRHAGE NEONATAL [None]
  - SUPRAVENTRICULAR EXTRASYSTOLES [None]
  - ATRIAL FLUTTER [None]
  - FOETAL EXPOSURE DURING PREGNANCY [None]
